FAERS Safety Report 23081198 (Version 1)
Quarter: 2023Q4

REPORT INFORMATION
  Report Type: Spontaneous
  Country: US (occurrence: US)
  Receive Date: 20231018
  Receipt Date: 20231018
  Transmission Date: 20240110
  Serious: No
  Sender: FDA-Public Use
  Company Number: US-BRACCO-2022US04859

PATIENT
  Sex: Female

DRUGS (1)
  1. MULTIHANCE [Suspect]
     Active Substance: GADOBENATE DIMEGLUMINE
     Indication: Diagnostic procedure
     Dosage: UNK, SINGLE
     Route: 065

REACTIONS (5)
  - Diarrhoea [Unknown]
  - Dyschezia [Unknown]
  - Dysuria [Unknown]
  - Pollakiuria [Unknown]
  - Brain fog [Unknown]
